FAERS Safety Report 7907582-3 (Version None)
Quarter: 2011Q4

REPORT INFORMATION
  Report Type: 
  Country: None (occurrence: None)
  Receive Date: 20111109
  Receipt Date: 20111109
  Transmission Date: 20120403
  Serious: Yes (Other)
  Sender: FDA-Public Use
  Company Number: None

PATIENT
  Sex: Female
  Weight: 54.4316 kg

DRUGS (2)
  1. CLONAZEPAM [Suspect]
     Indication: ANXIETY
     Dosage: 1-2 1MG. DAY; 1 OR 2 A DAY
     Dates: start: 20110920, end: 20111025
  2. CLONAZEPAM [Suspect]
     Indication: NERVOUSNESS
     Dosage: 1-2 1MG. DAY; 1 OR 2 A DAY
     Dates: start: 20110920, end: 20111025

REACTIONS (5)
  - PRODUCT COLOUR ISSUE [None]
  - PRODUCT SIZE ISSUE [None]
  - DIZZINESS [None]
  - PRODUCT SUBSTITUTION ISSUE [None]
  - ACTIVITIES OF DAILY LIVING IMPAIRED [None]
